FAERS Safety Report 12378351 (Version 1)
Quarter: 2016Q2

REPORT INFORMATION
  Report Type: Spontaneous
  Country: US (occurrence: US)
  Receive Date: 20160517
  Receipt Date: 20160517
  Transmission Date: 20160815
  Serious: Yes (Other)
  Sender: FDA-Public Use
  Company Number: US-BAYER-2016-090481

PATIENT
  Age: 30 Year
  Sex: Female

DRUGS (1)
  1. GADAVIST [Suspect]
     Active Substance: GADOBUTROL
     Indication: NUCLEAR MAGNETIC RESONANCE IMAGING BRAIN
     Dosage: UNK, ONCE
     Route: 042
     Dates: start: 20160503, end: 20160503

REACTIONS (10)
  - Dizziness [None]
  - Paraesthesia [None]
  - Skin burning sensation [None]
  - Erythema [None]
  - Swelling face [None]
  - Nausea [None]
  - Peripheral coldness [None]
  - Burning sensation [None]
  - Insomnia [None]
  - Chills [None]

NARRATIVE: CASE EVENT DATE: 20160503
